FAERS Safety Report 9112518 (Version 1)
Quarter: 2013Q1

REPORT INFORMATION
  Report Type: Spontaneous
  Country: IT (occurrence: IT)
  Receive Date: 20130211
  Receipt Date: 20130211
  Transmission Date: 20140127
  Serious: Yes (Other)
  Sender: FDA-Public Use
  Company Number: IT-TEVA-384791ISR

PATIENT
  Age: 20 Year
  Sex: Female

DRUGS (4)
  1. CARBOLITHIUM [Suspect]
     Dosage: 300 MILLIGRAM DAILY;
     Route: 048
     Dates: start: 20130114, end: 20130114
  2. CARBOLITHIUM [Suspect]
     Dosage: 150 MILLIGRAM DAILY;
     Route: 048
     Dates: start: 20130114, end: 20130114
  3. TOPAMAX [Suspect]
     Dosage: 1000 MILLIGRAM DAILY;
     Route: 048
     Dates: start: 20130114
  4. INVEGA [Suspect]
     Route: 048
     Dates: start: 20130114

REACTIONS (1)
  - Self injurious behaviour [Unknown]
